FAERS Safety Report 7742698-6 (Version None)
Quarter: 2011Q3

REPORT INFORMATION
  Report Type: 
  Country: None (occurrence: None)
  Receive Date: 20110912
  Receipt Date: 20110831
  Transmission Date: 20111222
  Serious: Yes (Hospitalization, Other)
  Sender: FDA-Public Use
  Company Number: US-CELGENEUS-163-21880-11083621

PATIENT
  Sex: Female

DRUGS (9)
  1. REVLIMID [Suspect]
     Dosage: 5 MILLIGRAM
     Route: 048
     Dates: start: 20110311, end: 20110101
  2. FOLIC ACID [Concomitant]
     Route: 065
  3. VITAMIN B6 [Concomitant]
     Route: 065
  4. PROCRIT [Concomitant]
     Route: 065
  5. OSCAL 500/200 D-3 [Concomitant]
     Route: 065
  6. CLOBETASOL PROPIONATE [Concomitant]
     Route: 065
  7. XANAX [Concomitant]
     Route: 065
  8. VITAMIN B-12 [Concomitant]
     Route: 065
  9. TETRACYCLINE HCL [Concomitant]
     Route: 065

REACTIONS (2)
  - THROMBOSIS [None]
  - HAEMORRHAGE [None]
